FAERS Safety Report 5475663-2 (Version None)
Quarter: 2007Q4

REPORT INFORMATION
  Report Type: 
  Country: None (occurrence: None)
  Receive Date: 20071001
  Receipt Date: 20070920
  Transmission Date: 20080405
  Serious: Yes (Hospitalization)
  Sender: FDA-Public Use
  Company Number: 2007S1000006

PATIENT
  Age: 82 Year
  Sex: Female
  Weight: 43.0917 kg

DRUGS (4)
  1. OXANDRIN [Suspect]
     Indication: WEIGHT DECREASED
     Dates: start: 20060310
  2. CIPROFLOXACIN [Concomitant]
  3. ETHAMBUTOL HCL [Concomitant]
  4. ROBITUSSIN [Concomitant]

REACTIONS (4)
  - CONFUSIONAL STATE [None]
  - DELIRIUM [None]
  - GAIT DISTURBANCE [None]
  - URINARY INCONTINENCE [None]
